FAERS Safety Report 14431659 (Version 1)
Quarter: 2018Q1

REPORT INFORMATION
  Report Type: Spontaneous
  Country: US (occurrence: US)
  Receive Date: 20180124
  Receipt Date: 20180124
  Transmission Date: 20180509
  Serious: Yes (Death, Hospitalization, Other)
  Sender: FDA-Public Use
  Company Number: US-ROCHE-2032088

PATIENT
  Age: 9 Year
  Sex: Female

DRUGS (4)
  1. ACTEMRA [Suspect]
     Active Substance: TOCILIZUMAB
     Indication: CYTOKINE RELEASE SYNDROME
     Route: 065
     Dates: start: 20130405
  2. ACTEMRA [Suspect]
     Active Substance: TOCILIZUMAB
     Route: 065
     Dates: start: 20130412
  3. TISAGENLECLEUCEL. [Suspect]
     Active Substance: TISAGENLECLEUCEL
     Indication: ACUTE LYMPHOCYTIC LEUKAEMIA
     Route: 065
     Dates: start: 20130401
  4. ACTEMRA [Suspect]
     Active Substance: TOCILIZUMAB
     Route: 065
     Dates: start: 20130419

REACTIONS (10)
  - Platelet count decreased [Unknown]
  - Acute kidney injury [Recovered/Resolved]
  - Febrile neutropenia [Recovered/Resolved]
  - Cytokine release syndrome [Recovered/Resolved]
  - Acute lymphocytic leukaemia [Fatal]
  - Tumour lysis syndrome [Recovered/Resolved]
  - Stenotrophomonas infection [Unknown]
  - Pseudomonas infection [Unknown]
  - Device related infection [Recovered/Resolved]
  - Tumour lysis syndrome [Recovered/Resolved]

NARRATIVE: CASE EVENT DATE: 20130409
